FAERS Safety Report 9280381 (Version 1)
Quarter: 2013Q2

REPORT INFORMATION
  Report Type: Spontaneous
  Country: US (occurrence: None)
  Receive Date: 20130507
  Receipt Date: 20130507
  Transmission Date: 20140414
  Serious: Yes (Disabling, Other)
  Sender: FDA-Public Use
  Company Number: None

PATIENT
  Age: 30 Year
  Sex: Male
  Weight: 79.38 kg

DRUGS (2)
  1. COLGATE TOOTHPASTE [Suspect]
     Dates: start: 20110601, end: 20130325
  2. DIAL ANTIMICROBIAL [Suspect]

REACTIONS (4)
  - Exercise tolerance decreased [None]
  - Pain [None]
  - Muscular weakness [None]
  - Muscle fatigue [None]
